FAERS Safety Report 9886674 (Version 2)
Quarter: 2014Q2

REPORT INFORMATION
  Report Type: Report from Study
  Country: JP (occurrence: JP)
  Receive Date: 20140210
  Receipt Date: 20140402
  Transmission Date: 20141212
  Serious: Yes (Other)
  Sender: FDA-Public Use
  Company Number: PHHY2014JP015845

PATIENT
  Age: 39 Year
  Sex: Male

DRUGS (33)
  1. LEPONEX / CLOZARIL [Suspect]
     Indication: SCHIZOPHRENIA, PARANOID TYPE
     Dosage: 12.5 MG, UNK
     Route: 048
     Dates: start: 20130724, end: 20130724
  2. LEPONEX / CLOZARIL [Suspect]
     Dosage: 25 MG, UNK
     Route: 048
     Dates: start: 20130725, end: 20130726
  3. LEPONEX / CLOZARIL [Suspect]
     Dosage: 50 MG, UNK
     Route: 048
     Dates: start: 20130727, end: 20130729
  4. LEPONEX / CLOZARIL [Suspect]
     Dosage: 75 MG, UNK
     Route: 048
     Dates: start: 20130730, end: 20130801
  5. LEPONEX / CLOZARIL [Suspect]
     Dosage: 100 MG, UNK
     Route: 048
     Dates: start: 20130802, end: 20130804
  6. LEPONEX / CLOZARIL [Suspect]
     Dosage: 75 MG, UNK
     Route: 048
     Dates: start: 20130805, end: 20130805
  7. LEPONEX / CLOZARIL [Suspect]
     Dosage: 50 MG, UNK
     Route: 048
     Dates: start: 20130806, end: 20130812
  8. LEPONEX / CLOZARIL [Suspect]
     Dosage: 25 MG, UNK
     Route: 048
     Dates: start: 20130813, end: 20130902
  9. LEPONEX / CLOZARIL [Suspect]
     Dosage: 50 MG, UNK
     Route: 048
     Dates: start: 20130903, end: 20130926
  10. LEPONEX / CLOZARIL [Suspect]
     Dosage: 75 MG, UNK
     Route: 048
     Dates: start: 20130927, end: 20131006
  11. LEPONEX / CLOZARIL [Suspect]
     Dosage: 100 MG, UNK
     Route: 048
     Dates: start: 20131007, end: 20131010
  12. LEPONEX / CLOZARIL [Suspect]
     Dosage: 125 MG, UNK
     Route: 048
     Dates: start: 20131011, end: 20131015
  13. LEPONEX / CLOZARIL [Suspect]
     Dosage: 150 MG, UNK
     Route: 048
     Dates: start: 20131016, end: 20131021
  14. LEPONEX / CLOZARIL [Suspect]
     Dosage: 175 MG, UNK
     Route: 048
     Dates: start: 20131022, end: 20131029
  15. LEPONEX / CLOZARIL [Suspect]
     Dosage: 200 MG, UNK
     Route: 048
     Dates: start: 20131029
  16. FLOMOX//CEFCAPENE PIVOXIL HYDROCHLORIDE [Suspect]
     Dosage: 100 MG, UNK
     Route: 048
     Dates: start: 20130804
  17. FLOMOX//CEFCAPENE PIVOXIL HYDROCHLORIDE [Suspect]
     Dosage: 300 MG, UNK
     Route: 048
     Dates: start: 20130805, end: 20130812
  18. LIMAS [Concomitant]
     Indication: SCHIZOPHRENIA, PARANOID TYPE
     Dosage: 600 MG, UNK
     Route: 048
     Dates: start: 20130704
  19. DEPAKENE-R [Concomitant]
     Indication: SCHIZOPHRENIA, PARANOID TYPE
     Dosage: 600 MG, UNK
     Dates: start: 20130708
  20. DEPAKENE-R [Concomitant]
     Dosage: 400 MG, UNK
     Route: 048
  21. DEPAKENE-R [Concomitant]
     Dosage: 200 MG, UNK
     Route: 048
     Dates: end: 20130808
  22. AMOBANTES [Concomitant]
     Indication: SCHIZOPHRENIA, PARANOID TYPE
     Dosage: 10 MG, UNK
     Route: 048
     Dates: start: 20130305
  23. MAGMITT [Concomitant]
     Dosage: 990 MG, UNK
     Route: 048
     Dates: start: 20130315
  24. MAGMITT [Concomitant]
     Dosage: 990 MG, UNK
     Route: 048
  25. MAGMITT [Concomitant]
     Dosage: 1980 MG, UNK
     Route: 048
  26. LEUCON [Concomitant]
     Indication: PROPHYLAXIS
     Dosage: 30 MG, UNK
     Route: 048
     Dates: start: 20130906
  27. LEUCON [Concomitant]
     Dosage: 60 MG, UNK
     Route: 048
  28. BASEN//VOGLIBOSE [Concomitant]
     Dosage: 0.6 MG, UNK
     Route: 048
  29. BEZALIP [Concomitant]
     Dosage: 400 MG, UNK
     Route: 048
  30. ALOSITOL [Concomitant]
     Dosage: 200 MG, UNK
     Route: 048
  31. NESINA [Concomitant]
     Dosage: 25 MG, UNK
     Route: 048
  32. METHYCOOL [Concomitant]
     Dosage: 1.5 MG, UNK
     Route: 048
  33. FERROMIA [Concomitant]
     Dosage: 100 MG, UNK
     Route: 048
     Dates: start: 20131016

REACTIONS (6)
  - Pleural effusion [Recovered/Resolved]
  - Enterocolitis [Recovered/Resolved]
  - White blood cell count decreased [Recovered/Resolved]
  - Blood pressure decreased [Recovering/Resolving]
  - Heart rate decreased [Unknown]
  - Pneumonia [Unknown]
